FAERS Safety Report 7405067-4 (Version None)
Quarter: 2011Q2

REPORT INFORMATION
  Report Type: 
  Country: None (occurrence: None)
  Receive Date: 20110411
  Receipt Date: 20110404
  Transmission Date: 20111010
  Serious: Yes (Other)
  Sender: FDA-Public Use
  Company Number: TR-ASTELLAS-2011EU001348

PATIENT
  Sex: Female
  Weight: 82 kg

DRUGS (1)
  1. BLINDED SOLIFENACIN [Suspect]
     Indication: HYPERTONIC BLADDER
     Dosage: UNK
     Route: 048
     Dates: start: 20110311, end: 20110315

REACTIONS (1)
  - HAEMATEMESIS [None]
